FAERS Safety Report 10071177 (Version 5)
Quarter: 2015Q2

REPORT INFORMATION
  Report Type: Spontaneous
  Country: US (occurrence: US)
  Receive Date: 20140410
  Receipt Date: 20150416
  Transmission Date: 20150821
  Serious: Yes (Hospitalization, Disabling, Other)
  Sender: FDA-Public Use
  Company Number: US-009507513-1404USA001968

PATIENT
  Sex: Male

DRUGS (3)
  1. PROPECIA [Suspect]
     Active Substance: FINASTERIDE
     Indication: ALOPECIA
     Dosage: 1 MG, UNK
     Route: 048
     Dates: start: 20021021, end: 2003
  2. AMBIEN [Concomitant]
     Active Substance: ZOLPIDEM TARTRATE
     Dosage: UNK
     Dates: start: 20010330, end: 20061026
  3. THERAPY UNSPECIFIED [Concomitant]
     Active Substance: UNSPECIFIED INGREDIENT
     Indication: ANTIDEPRESSANT THERAPY
     Dosage: UNK
     Dates: start: 20010511

REACTIONS (24)
  - Erectile dysfunction [Not Recovered/Not Resolved]
  - Gastrooesophageal reflux disease [Unknown]
  - HIV infection [Unknown]
  - Spinal fusion surgery [Unknown]
  - Anxiety [Not Recovered/Not Resolved]
  - Hallucination, auditory [Unknown]
  - Intervertebral disc operation [Unknown]
  - Seizure [Unknown]
  - Sexual dysfunction [Not Recovered/Not Resolved]
  - Suicide attempt [Unknown]
  - Hypertension [Unknown]
  - Glucose tolerance impaired [Unknown]
  - Mania [Unknown]
  - Appendicectomy [Unknown]
  - Sleep disorder [Unknown]
  - Panic attack [Unknown]
  - Major depression [Unknown]
  - Surgery [Unknown]
  - Anxiety [Not Recovered/Not Resolved]
  - Pituitary tumour [Unknown]
  - Psychotic disorder [Unknown]
  - Road traffic accident [Unknown]
  - Depression [Not Recovered/Not Resolved]
  - Bipolar disorder [Unknown]

NARRATIVE: CASE EVENT DATE: 2003
